FAERS Safety Report 9310330 (Version 2)
Quarter: 2013Q2

REPORT INFORMATION
  Report Type: Spontaneous
  Country: GB (occurrence: GB)
  Receive Date: 20130527
  Receipt Date: 20130626
  Transmission Date: 20140414
  Serious: Yes (Other)
  Sender: FDA-Public Use
  Company Number: GB-PFIZER INC-2013159361

PATIENT
  Age: 63 Year
  Sex: Male
  Weight: 89.5 kg

DRUGS (6)
  1. AMLODIPINE BESILATE [Suspect]
     Dosage: UNK
     Route: 048
     Dates: start: 20130214
  2. RAMIPRIL [Concomitant]
     Dosage: UNK
     Dates: start: 20130117
  3. SIMVASTATIN [Concomitant]
     Dosage: UNK
     Dates: start: 20130117
  4. LEVOTHYROXINE [Concomitant]
     Dosage: UNK
     Dates: start: 20130117
  5. INDAPAMIDE [Concomitant]
     Dosage: UNK
     Dates: start: 20130117
  6. BENDROFLUMETHIAZIDE [Concomitant]
     Dosage: UNK
     Dates: start: 20130214, end: 20130314

REACTIONS (2)
  - Cutaneous vasculitis [Unknown]
  - Vasculitic rash [Unknown]
